FAERS Safety Report 4341493-8 (Version None)
Quarter: 2004Q2

REPORT INFORMATION
  Report Type: 
  Country: None (occurrence: None)
  Receive Date: 20040415
  Receipt Date: 20040330
  Transmission Date: 20050107
  Serious: Yes (Life-Threatening, Hospitalization)
  Sender: FDA-Public Use
  Company Number: US_0404101986

PATIENT
  Age: 73 Year
  Sex: Female

DRUGS (1)
  1. HUMULIN 70/30 [Suspect]
     Indication: DIABETES MELLITUS
     Dosage: 55 U DAY
     Dates: start: 19960101

REACTIONS (15)
  - ASTHENIA [None]
  - BALANCE DISORDER [None]
  - CARDIAC FAILURE CONGESTIVE [None]
  - CHOKING [None]
  - CHRONIC OBSTRUCTIVE AIRWAYS DISEASE [None]
  - CONDITION AGGRAVATED [None]
  - FALL [None]
  - FEMUR FRACTURE [None]
  - HOARSENESS [None]
  - INSOMNIA [None]
  - MEDICAL DEVICE COMPLICATION [None]
  - MOVEMENT DISORDER [None]
  - RESPIRATORY DISORDER [None]
  - SLEEP APNOEA SYNDROME [None]
  - VISUAL DISTURBANCE [None]
